FAERS Safety Report 17018056 (Version 1)
Quarter: 2019Q4

REPORT INFORMATION
  Report Type: Spontaneous
  Country: US (occurrence: US)
  Receive Date: 20191111
  Receipt Date: 20191111
  Transmission Date: 20200122
  Serious: No
  Sender: FDA-Public Use
  Company Number: US-ELI_LILLY_AND_COMPANY-US201911003368

PATIENT
  Age: 66 Year
  Sex: Female
  Weight: 90.7 kg

DRUGS (7)
  1. ADCIRCA [Suspect]
     Active Substance: TADALAFIL
     Indication: PULMONARY ARTERIAL HYPERTENSION
     Dosage: UNK, UNKNOWN
     Route: 065
  2. TRACLEER BOSENTAN [Concomitant]
     Indication: PULMONARY ARTERIAL HYPERTENSION
  3. ORENITRAM [Suspect]
     Active Substance: TREPROSTINIL
     Dosage: 6.5 MG, BID
     Route: 048
     Dates: start: 20190128
  4. PROTONIX OMEPRAZOLE [Concomitant]
     Indication: PRODUCT USED FOR UNKNOWN INDICATION
     Dosage: 40 MG, EACH MORNING
     Route: 065
  5. ORENITRAM [Suspect]
     Active Substance: TREPROSTINIL
     Indication: PULMONARY ARTERIAL HYPERTENSION
     Dosage: 6.5 MG, BID
     Route: 048
     Dates: start: 20190128
  6. MIRTAZAPINE. [Concomitant]
     Active Substance: MIRTAZAPINE
     Indication: DEPRESSION
     Dosage: 15 MG, EACH EVENING
     Route: 065
  7. ORENITRAM [Suspect]
     Active Substance: TREPROSTINIL
     Dosage: 6.5 MG, BID
     Route: 048
     Dates: start: 20190128

REACTIONS (1)
  - Depression [Unknown]
